FAERS Safety Report 5712208-3 (Version None)
Quarter: 2008Q2

REPORT INFORMATION
  Report Type: 
  Country: None (occurrence: None)
  Receive Date: 20080422
  Receipt Date: 20080415
  Transmission Date: 20081010
  Serious: Yes (Hospitalization)
  Sender: FDA-Public Use
  Company Number: GB-BAYER-200810990BNE

PATIENT

DRUGS (1)
  1. FLUDARA [Suspect]
     Indication: DRUG USE FOR UNKNOWN INDICATION
     Route: 037

REACTIONS (1)
  - DIPLEGIA [None]
